FAERS Safety Report 8432614-6 (Version None)
Quarter: 2012Q2

REPORT INFORMATION
  Report Type: 
  Country: None (occurrence: None)
  Receive Date: 20120606
  Receipt Date: 20120525
  Transmission Date: 20120825
  Serious: Yes (Hospitalization)
  Sender: FDA-Public Use
  Company Number: AUR-APL-2009-00994

PATIENT
  Age: 71 Year
  Sex: Female

DRUGS (19)
  1. PLAVIX [Suspect]
     Indication: PRODUCT USED FOR UNKNOWN INDICATION
     Dosage: (1 IN 1 D)
     Dates: start: 20090822
  2. TOCOPHERYL ACETATE (TOCOPHERYL ACETATE) [Suspect]
     Indication: PRODUCT USED FOR UNKNOWN INDICATION
     Dates: start: 20090821, end: 20090821
  3. NORDAZ (NORDAZEPAM) [Concomitant]
  4. SOLU-MEDROL [Suspect]
     Indication: PREMEDICATION
     Dates: start: 20090821, end: 20090821
  5. LOVENOX [Suspect]
     Indication: PREMEDICATION
     Dosage: SUBCUTANEOUS
     Route: 058
     Dates: start: 20090821, end: 20090821
  6. REPAGLINIDE [Suspect]
     Indication: PRODUCT USED FOR UNKNOWN INDICATION
     Dosage: 1.5 MG (1.5 MG,1 IN 1 D),ORAL
     Route: 048
     Dates: start: 20090822, end: 20090828
  7. HAVLANE (LOPRAZOLAM MESILATE) [Concomitant]
  8. VISIPAQUE [Suspect]
     Indication: PRODUCT USED FOR UNKNOWN INDICATION
     Dosage: INTRAVENOUS
     Route: 042
     Dates: start: 20090821, end: 20090821
  9. JANUVIA (SITAGLIPITN PHOSPHATE) [Concomitant]
  10. METFORMIN HCL [Suspect]
     Indication: TYPE 2 DIABETES MELLITUS
     Dosage: 500 MG THRICE/DAY (500 MG,3 IN 1 D),ORAL
     Route: 048
     Dates: start: 20090822, end: 20090828
  11. EBASTINE [Concomitant]
  12. ISOSORBIDE DINITRATE [Suspect]
     Indication: PREMEDICATION
     Dates: start: 20090821, end: 20090821
  13. BETADINE [Suspect]
     Indication: INFECTION PROPHYLAXIS
     Dosage: TOPICAL
     Route: 061
     Dates: start: 20090821, end: 20090821
  14. ISOPTIN [Suspect]
     Indication: PREMEDICATION
     Dates: start: 20090821, end: 20090821
  15. ASPIRIN [Suspect]
     Indication: PRODUCT USED FOR UNKNOWN INDICATION
     Dosage: (1 IN 1 D),ORAL
     Route: 048
     Dates: start: 20090822
  16. DAFLON (DIOSMIN) [Concomitant]
  17. AMLODIPINE BESYLATE [Suspect]
     Indication: PRODUCT USED FOR UNKNOWN INDICATION
     Dosage: (1 IN 1 D),ORAL
     Route: 048
     Dates: start: 20090822
  18. AERIUS (EBASTINE) [Concomitant]
  19. POLYETHYLENE GLYCOL [Concomitant]

REACTIONS (8)
  - VIRAL RASH [None]
  - RASH ERYTHEMATOUS [None]
  - RASH PRURITIC [None]
  - IDIOPATHIC URTICARIA [None]
  - TOXIC SKIN ERUPTION [None]
  - RASH MACULO-PAPULAR [None]
  - POST PROCEDURAL COMPLICATION [None]
  - TYPE III IMMUNE COMPLEX MEDIATED REACTION [None]
